FAERS Safety Report 4589386-5 (Version None)
Quarter: 2005Q1

REPORT INFORMATION
  Report Type: 
  Country: None (occurrence: None)
  Receive Date: 20050216
  Receipt Date: 20050203
  Transmission Date: 20050727
  Serious: Yes (Hospitalization)
  Sender: FDA-Public Use
  Company Number: 2005-BP-01726BP

PATIENT
  Sex: Female

DRUGS (3)
  1. COMBIVENT [Suspect]
     Indication: ASTHMA
     Dosage: 2 PUF (SEE TEXT, 18 MCG/103 MCG 2 PUFFS DAILY), IH
     Route: 055
     Dates: start: 20040101, end: 20041101
  2. COMBIVENT [Suspect]
     Indication: ASTHMA
     Dosage: 2 PUF (SEE TEXT, 18 MCG/103 MCG 2 PUFFS DAILY), IH
     Route: 055
     Dates: start: 20050203
  3. ADVAIR DISKUS 100/50 [Concomitant]

REACTIONS (3)
  - CHOLECYSTECTOMY [None]
  - COLLAPSE OF LUNG [None]
  - PNEUMONIA [None]
